FAERS Safety Report 17159915 (Version 2)
Quarter: 2020Q2

REPORT INFORMATION
  Report Type: Spontaneous
  Country: US (occurrence: US)
  Receive Date: 20191216
  Receipt Date: 20200420
  Transmission Date: 20200713
  Serious: Yes (Other)
  Sender: FDA-Public Use
  Company Number: US-SA-2019SA344886

PATIENT
  Sex: Female

DRUGS (4)
  1. TAXOTERE [Suspect]
     Active Substance: DOCETAXEL
     Dosage: UNK UNK, Q3W
     Route: 042
     Dates: start: 20111018, end: 20111018
  2. ANASTROZOLE. [Concomitant]
     Active Substance: ANASTROZOLE
  3. TAXOTERE [Suspect]
     Active Substance: DOCETAXEL
     Indication: BREAST CANCER FEMALE
     Dosage: UNK UNK, Q3W
     Route: 042
     Dates: start: 20110805, end: 20110805
  4. AFINITOR [Concomitant]
     Active Substance: EVEROLIMUS

REACTIONS (2)
  - Alopecia [Recovering/Resolving]
  - Emotional distress [Unknown]
